FAERS Safety Report 6251382-X (Version None)
Quarter: 2009Q2

REPORT INFORMATION
  Report Type: 
  Country: None (occurrence: None)
  Receive Date: 20090630
  Receipt Date: 20090623
  Transmission Date: 20091009
  Serious: Yes (Other)
  Sender: FDA-Public Use
  Company Number: B0580522A

PATIENT
  Sex: Female

DRUGS (1)
  1. VALTREX [Suspect]
     Indication: ORAL HERPES
     Dosage: 500MG TWICE PER DAY
     Route: 048
     Dates: start: 20090323, end: 20090327

REACTIONS (3)
  - CHILLS [None]
  - CONVULSION [None]
  - VOMITING [None]
